FAERS Safety Report 17325095 (Version 1)
Quarter: 2020Q1

REPORT INFORMATION
  Report Type: Spontaneous
  Country: GR (occurrence: GR)
  Receive Date: 20200127
  Receipt Date: 20200127
  Transmission Date: 20200409
  Serious: Yes (Other)
  Sender: FDA-Public Use
  Company Number: GR-MYLANLABS-2020M1007873

PATIENT
  Age: 55 Year
  Sex: Female

DRUGS (3)
  1. INEGY [Concomitant]
     Active Substance: EZETIMIBE\SIMVASTATIN
     Indication: BLOOD CHOLESTEROL ABNORMAL
     Dosage: UNK
     Dates: start: 20191020
  2. ZINADOL [Suspect]
     Active Substance: CEFUROXIME AXETIL
     Indication: LIMB OPERATION
     Dosage: 2 DOSAGE FORM, QD (1 DF, BID 1PILL)
  3. HYDROCORTISONE. [Suspect]
     Active Substance: HYDROCORTISONE
     Indication: INFLAMMATION
     Dosage: UNK

REACTIONS (7)
  - Dyspepsia [Unknown]
  - Swelling face [Unknown]
  - Abdominal distension [Unknown]
  - Swelling [Unknown]
  - Anaphylactic shock [Unknown]
  - Skin disorder [Unknown]
  - Dyspnoea [Unknown]

NARRATIVE: CASE EVENT DATE: 20191009
